FAERS Safety Report 24456538 (Version 2)
Quarter: 2024Q4

REPORT INFORMATION
  Report Type: Report from Study
  Country: US (occurrence: US)
  Receive Date: 20241017
  Receipt Date: 20241018
  Transmission Date: 20250114
  Serious: No
  Sender: ROCHE
  Company Number: US-ROCHE-3510921

PATIENT
  Age: 52 Year
  Sex: Male

DRUGS (7)
  1. RITUXAN [Suspect]
     Active Substance: RITUXIMAB
     Indication: Nephritic syndrome
     Dosage: THAN 1000 MG, EVERY 6 MONTH
     Route: 042
  2. EFFEXOR XR [Concomitant]
     Active Substance: VENLAFAXINE HYDROCHLORIDE
  3. ALLOPURINOL [Concomitant]
     Active Substance: ALLOPURINOL
  4. TOPROL XL [Concomitant]
     Active Substance: METOPROLOL SUCCINATE
  5. LIPITOR [Concomitant]
     Active Substance: ATORVASTATIN CALCIUM
  6. PREDNISONE [Concomitant]
     Active Substance: PREDNISONE
  7. ATIVAN [Concomitant]
     Active Substance: LORAZEPAM

REACTIONS (5)
  - Off label use [Unknown]
  - Renal function test abnormal [Unknown]
  - Musculoskeletal stiffness [Unknown]
  - Arthropathy [Unknown]
  - Gout [Unknown]

NARRATIVE: CASE EVENT DATE: 20210101
